FAERS Safety Report 13002844 (Version 2)
Quarter: 2017Q1

REPORT INFORMATION
  Report Type: Spontaneous
  Country: US (occurrence: US)
  Receive Date: 20161206
  Receipt Date: 20170124
  Transmission Date: 20170428
  Serious: No
  Sender: FDA-Public Use
  Company Number: US-JNJFOC-20161022769

PATIENT
  Sex: Male
  Weight: 83.92 kg

DRUGS (2)
  1. TOPAMAX [Suspect]
     Active Substance: TOPIRAMATE
     Indication: MIGRAINE
     Route: 048
  2. MAXALT [Suspect]
     Active Substance: RIZATRIPTAN BENZOATE
     Indication: MIGRAINE
     Dosage: UPTO TWICE DAILY
     Route: 048

REACTIONS (11)
  - Cough [Unknown]
  - Euphoric mood [Unknown]
  - Drug dose omission [Unknown]
  - Feeling of relaxation [Unknown]
  - Decreased appetite [Unknown]
  - Hypoacusis [Not Recovered/Not Resolved]
  - Migraine [Unknown]
  - Product outer packaging issue [Unknown]
  - Hyperacusis [Unknown]
  - Abdominal discomfort [Not Recovered/Not Resolved]
  - Product taste abnormal [Unknown]
